FAERS Safety Report 10921680 (Version 2)
Quarter: 2015Q1

REPORT INFORMATION
  Report Type: Report from Study
  Country: JP (occurrence: JP)
  Receive Date: 20150317
  Receipt Date: 20150317
  Transmission Date: 20150721
  Serious: Yes (Hospitalization)
  Sender: FDA-Public Use
  Company Number: JP-AMGEN-2014-2574

PATIENT
  Age: 79 Year
  Sex: Male
  Weight: 44.6 kg

DRUGS (15)
  1. WARKMIN [Concomitant]
     Active Substance: ALFACALCIDOL
     Indication: OSTEOPOROSIS PROPHYLAXIS
     Dosage: UNK
     Route: 048
     Dates: start: 20131226
  2. TAKEPRON [Concomitant]
     Active Substance: LANSOPRAZOLE
     Indication: PROPHYLAXIS
     Dosage: UNK
     Route: 048
     Dates: start: 20140522
  3. SENNOSIDE [Concomitant]
     Active Substance: SENNOSIDES
     Dosage: UNK
     Route: 048
     Dates: start: 20141113
  4. ARTIST [Concomitant]
     Active Substance: CARVEDILOL
     Indication: HYPERTENSION
     Dosage: UNK
     Route: 048
     Dates: start: 20140808
  5. CALONAL [Concomitant]
     Active Substance: ACETAMINOPHEN
     Indication: INTERSTITIAL LUNG DISEASE
     Route: 048
     Dates: start: 20141117, end: 20141118
  6. VALTREX [Concomitant]
     Active Substance: VALACYCLOVIR HYDROCHLORIDE
     Indication: INFECTION PROPHYLAXIS
     Dosage: UNK
     Route: 048
     Dates: start: 20140522
  7. SENNOSIDE [Concomitant]
     Active Substance: SENNOSIDES
     Indication: CONSTIPATION
     Dosage: 24 MG, AS NECESSARY
     Route: 048
     Dates: start: 20140610
  8. CARFILZOMIB [Suspect]
     Active Substance: CARFILZOMIB
     Indication: PLASMA CELL MYELOMA
     Dosage: FREQ. TEXT: DAYS 1,2
     Route: 042
     Dates: start: 20140526, end: 20140527
  9. INFLUENZA VACCINATION [Concomitant]
     Active Substance: INFLUENZA VIRUS VACCINE
     Indication: PROPHYLAXIS
     Route: 058
     Dates: start: 20141104, end: 20141104
  10. BAYASPIRIN [Concomitant]
     Active Substance: ASPIRIN
     Indication: ANGINA PECTORIS
     Dosage: UNK
     Route: 048
     Dates: start: 20000904, end: 20141120
  11. BAYASPIRIN [Concomitant]
     Active Substance: ASPIRIN
     Dosage: 100 MG, QD
     Route: 048
     Dates: start: 20141122
  12. CARFILZOMIB [Suspect]
     Active Substance: CARFILZOMIB
     Dosage: FREQUENCY: 4 EVERY 21 DAYS; FREQ. TEXT: DAYS 8,9,15,16
     Route: 042
     Dates: start: 20140602, end: 20140610
  13. DEXAMETHASONE. [Suspect]
     Active Substance: DEXAMETHASONE
     Indication: PLASMA CELL MYELOMA
     Dosage: FREQUENCY: 8 EVERY 28 DAYS; FREQ. TEXT: DAYS 1,2,8,9,15,16,22,23 EVERY 28 DAYS
     Route: 048
     Dates: start: 20140526, end: 20141119
  14. CARFILZOMIB [Suspect]
     Active Substance: CARFILZOMIB
     Dosage: FREQUENCY: 6 EVERY 28 DAYS; FREQ. TEXT: DAYS 1,2,8,9,15,16, EVERY 28 DAYS
     Route: 042
     Dates: start: 20140623, end: 20141119
  15. GRANISETRON HYDROCHLORIDE. [Concomitant]
     Active Substance: GRANISETRON HYDROCHLORIDE
     Indication: PROPHYLAXIS OF NAUSEA AND VOMITING
     Route: 042
     Dates: start: 20141021, end: 20141119

REACTIONS (1)
  - Interstitial lung disease [Recovered/Resolved]

NARRATIVE: CASE EVENT DATE: 20141120
